FAERS Safety Report 14136613 (Version 2)
Quarter: 2018Q1

REPORT INFORMATION
  Report Type: Report from Study
  Country: None (occurrence: US)
  Receive Date: 20171027
  Receipt Date: 20180116
  Transmission Date: 20180508
  Serious: Yes (Death, Hospitalization)
  Sender: FDA-Public Use
  Company Number: US-VIFOR (INTERNATIONAL) INC.-VIT-2017-10660

PATIENT
  Sex: Male

DRUGS (5)
  1. ALLOPURINOL. [Concomitant]
     Active Substance: ALLOPURINOL
  2. ACETYLSALICYLIC ACID [Concomitant]
     Active Substance: ASPIRIN
  3. VELTASSA [Suspect]
     Active Substance: PATIROMER
     Indication: HYPERKALAEMIA
     Route: 048
     Dates: start: 20161115, end: 201801
  4. VELTASSA [Suspect]
     Active Substance: PATIROMER
     Route: 048
     Dates: start: 20161109
  5. CHLORTALIDONE [Concomitant]
     Active Substance: CHLORTHALIDONE

REACTIONS (2)
  - Cerebrovascular accident [Not Recovered/Not Resolved]
  - Death [Fatal]
